FAERS Safety Report 10788991 (Version 3)
Quarter: 2015Q2

REPORT INFORMATION
  Report Type: Spontaneous
  Country: US (occurrence: US)
  Receive Date: 20150212
  Receipt Date: 20150506
  Transmission Date: 20150821
  Serious: Yes (Hospitalization, Other)
  Sender: FDA-Public Use
  Company Number: US-BAYER-2015-020273

PATIENT
  Age: 27 Year
  Sex: Female
  Weight: 91 kg

DRUGS (6)
  1. OMEPRAZOLE. [Concomitant]
     Active Substance: OMEPRAZOLE
  2. MIRENA [Suspect]
     Active Substance: LEVONORGESTREL
     Indication: CONTRACEPTION
     Dosage: 20 MCG/24HR, CONT
     Route: 015
     Dates: start: 20071106, end: 201111
  3. WELLBUTRIN [Concomitant]
     Active Substance: BUPROPION HYDROCHLORIDE
     Indication: DEPRESSION
     Dosage: UNK
     Dates: start: 2003
  4. ZOFRAN [Concomitant]
     Active Substance: ONDANSETRON HYDROCHLORIDE
  5. ABILIFY [Concomitant]
     Active Substance: ARIPIPRAZOLE
     Indication: DEPRESSION
     Dosage: UNK
     Dates: start: 2005
  6. ABILIFY [Concomitant]
     Active Substance: ARIPIPRAZOLE
     Indication: ANXIETY

REACTIONS (15)
  - Abdominal pain [None]
  - Drug ineffective [None]
  - Depression [None]
  - Anxiety [None]
  - Internal injury [None]
  - Emotional distress [None]
  - Fear [None]
  - Device issue [None]
  - Injury [None]
  - Medical device discomfort [None]
  - Uterine perforation [None]
  - Pelvic pain [None]
  - Pregnancy with contraceptive device [None]
  - Depressed mood [None]
  - Genital haemorrhage [None]

NARRATIVE: CASE EVENT DATE: 200711
